FAERS Safety Report 6744669-5 (Version None)
Quarter: 2010Q2

REPORT INFORMATION
  Report Type: 
  Country: None (occurrence: None)
  Receive Date: 20100526
  Receipt Date: 20100526
  Transmission Date: 20101027
  Serious: Yes (Hospitalization, Other)
  Sender: FDA-Public Use
  Company Number: None

PATIENT

DRUGS (2)
  1. VORINOSTAT 400 MG [Suspect]
     Indication: LYMPHOMA
     Dosage: 400 MG Q DAY PO
     Route: 048
     Dates: start: 20091226, end: 20100102
  2. LIDOCAINE 2 GM/250 ML [Suspect]
     Indication: VENTRICULAR TACHYCARDIA
     Dosage: 2 MG/MIN CONTINUOUS IV DRIP
     Route: 041
     Dates: start: 20100102, end: 20100104

REACTIONS (6)
  - ALANINE AMINOTRANSFERASE INCREASED [None]
  - ASPARTATE AMINOTRANSFERASE INCREASED [None]
  - ELECTROCARDIOGRAM QT PROLONGED [None]
  - GRAND MAL CONVULSION [None]
  - UNRESPONSIVE TO STIMULI [None]
  - VENTRICULAR TACHYCARDIA [None]
